FAERS Safety Report 8195464-4 (Version None)
Quarter: 2012Q1

REPORT INFORMATION
  Report Type: 
  Country: None (occurrence: None)
  Receive Date: 20120308
  Receipt Date: 20120228
  Transmission Date: 20120608
  Serious: Yes (Hospitalization)
  Sender: FDA-Public Use
  Company Number: DK-FRI-1000024075

PATIENT
  Sex: Female

DRUGS (3)
  1. MIRTAZAPINE [Concomitant]
     Indication: DEPRESSION
     Dosage: 15 MG
  2. MEMANTINE HCL [Suspect]
     Indication: DEMENTIA ALZHEIMER'S TYPE
     Dosage: 10 MG
     Route: 048
     Dates: start: 20110816, end: 20110830
  3. ESCITALOPRAM [Concomitant]
     Indication: DEPRESSION
     Dosage: 20 MG

REACTIONS (5)
  - NYSTAGMUS [None]
  - VOMITING [None]
  - NAUSEA [None]
  - DIPLOPIA [None]
  - DIZZINESS [None]
